FAERS Safety Report 8621199-7 (Version None)
Quarter: 2012Q3

REPORT INFORMATION
  Report Type: 
  Country: None (occurrence: None)
  Receive Date: 20120824
  Receipt Date: 20120810
  Transmission Date: 20120928
  Serious: Yes (Hospitalization)
  Sender: FDA-Public Use
  Company Number: JP-ROCHE-1106609

PATIENT
  Age: 35 Year
  Sex: Male

DRUGS (16)
  1. VALGANCICLOVIR [Suspect]
     Indication: CYTOMEGALOVIRUS CHORIORETINITIS
     Route: 048
     Dates: start: 20100519, end: 20100630
  2. VALGANCICLOVIR [Suspect]
     Route: 048
     Dates: start: 20100701, end: 20110120
  3. NORVIR [Suspect]
     Indication: HIV INFECTION
     Route: 048
     Dates: start: 20091022, end: 20110331
  4. MYCOBUTIN [Suspect]
     Indication: MYCOBACTERIUM AVIUM COMPLEX INFECTION
     Route: 048
     Dates: start: 20091120, end: 20091211
  5. EPZICOM [Suspect]
     Indication: HIV INFECTION
     Route: 048
     Dates: start: 20091211, end: 20100920
  6. ISENTRESS [Concomitant]
     Dates: start: 20100921, end: 20110331
  7. PENTAMIDINE ISETHIONATE [Concomitant]
     Route: 055
     Dates: start: 20101012, end: 20110331
  8. INTELENCE [Concomitant]
     Route: 048
     Dates: start: 20100921, end: 20110331
  9. SEMEN COICIS [Concomitant]
     Dates: start: 20101214, end: 20110331
  10. CLINDAMYCIN PHOSPHATE [Concomitant]
     Dosage: APPROPRIATE DOSE
     Route: 051
     Dates: start: 20101214, end: 20110331
  11. REYATAZ [Suspect]
     Indication: HIV INFECTION
     Route: 048
     Dates: start: 20091022, end: 20091202
  12. PREZISTA [Suspect]
     Indication: HIV INFECTION
     Route: 048
     Dates: start: 20091203, end: 20110331
  13. TRUVADA [Suspect]
     Indication: HIV INFECTION
     Route: 048
     Dates: start: 20091022, end: 20091202
  14. CHLORHEXIDINE GLUCONATE [Concomitant]
     Dosage: APPROPRIATE DOSE
     Route: 051
     Dates: start: 20101214, end: 20110331
  15. VALGANCICLOVIR [Suspect]
     Indication: CYTOMEGALOVIRUS INFECTION
     Route: 048
     Dates: start: 20100106, end: 20100630
  16. VALGANCICLOVIR [Suspect]
     Indication: MYCOBACTERIUM AVIUM COMPLEX INFECTION
     Route: 048
     Dates: start: 20100216, end: 20100324

REACTIONS (5)
  - MYCOBACTERIUM AVIUM COMPLEX INFECTION [None]
  - HYPOAESTHESIA [None]
  - RENAL IMPAIRMENT [None]
  - HYPERURICAEMIA [None]
  - CYTOMEGALOVIRUS CHORIORETINITIS [None]
